FAERS Safety Report 6784805-8 (Version None)
Quarter: 2010Q2

REPORT INFORMATION
  Report Type: 
  Country: None (occurrence: None)
  Receive Date: 20100622
  Receipt Date: 20100616
  Transmission Date: 20101027
  Serious: Yes (Death, Hospitalization, Other)
  Sender: FDA-Public Use
  Company Number: PHHY2010IE11857

PATIENT
  Sex: Female
  Weight: 70 kg

DRUGS (11)
  1. CLOZARIL [Suspect]
     Indication: PSYCHOTIC DISORDER
     Dosage: UNK MG, UNK
     Route: 048
     Dates: end: 20100201
  2. CLOZARIL [Suspect]
     Dosage: 75 MG, QD
     Dates: start: 20080101, end: 20100201
  3. CLOZARIL [Suspect]
     Dosage: UNK
     Dates: start: 20080109
  4. CALCICHEW [Concomitant]
     Route: 048
  5. PROTIUM [Concomitant]
     Dosage: 40 MG, UNK
     Route: 048
  6. CYSTRIN [Concomitant]
     Dosage: 5 MG, UNK
     Route: 048
  7. SEROXAT ^CIBA-GEIGY^ [Concomitant]
     Dosage: 10 MG, UNK
     Route: 048
  8. MADOPAR [Concomitant]
     Dosage: 250 MG, TID
     Route: 048
  9. RITALIN [Concomitant]
     Dosage: 10 MG, UNK
     Route: 048
  10. RITALIN [Concomitant]
     Dosage: 5 MG, UNK
  11. SINEMET CR [Concomitant]
     Dosage: UNK

REACTIONS (7)
  - ABDOMINAL DISTENSION [None]
  - DEATH [None]
  - DRUG INEFFECTIVE [None]
  - HYPOTENSION [None]
  - MALAISE [None]
  - PALLOR [None]
  - VOMITING [None]
